FAERS Safety Report 9200806 (Version 1)
Quarter: 2013Q1

REPORT INFORMATION
  Report Type: Spontaneous
  Country: US (occurrence: None)
  Receive Date: 20130328
  Receipt Date: 20130328
  Transmission Date: 20140127
  Serious: Yes (Other)
  Sender: FDA-Public Use
  Company Number: None

PATIENT
  Age: 44 Year
  Sex: Male
  Weight: 163.3 kg

DRUGS (1)
  1. CIPRO [Suspect]
     Indication: GROIN PAIN
     Dosage: 500MG TWICE DAILY PO
     Route: 048
     Dates: start: 20130227, end: 20130313

REACTIONS (7)
  - Pain in jaw [None]
  - Arthralgia [None]
  - Arthralgia [None]
  - Hallucination, visual [None]
  - Dyspnoea exertional [None]
  - Tendon pain [None]
  - Arthralgia [None]
